FAERS Safety Report 7768445-X (Version None)
Quarter: 2011Q3

REPORT INFORMATION
  Report Type: 
  Country: None (occurrence: None)
  Receive Date: 20110922
  Receipt Date: 20110428
  Transmission Date: 20111222
  Serious: Yes (Hospitalization)
  Sender: FDA-Public Use
  Company Number: US-ASTRAZENECA-2011SE25075

PATIENT
  Age: 17 Year
  Sex: Male
  Weight: 84.8 kg

DRUGS (2)
  1. SEROQUEL XR [Suspect]
     Indication: SUICIDAL IDEATION
     Route: 048
     Dates: start: 20110101
  2. SEROQUEL XR [Suspect]
     Indication: DEPRESSION
     Route: 048
     Dates: start: 20110101

REACTIONS (6)
  - WEIGHT DECREASED [None]
  - WEIGHT INCREASED [None]
  - DEPRESSION [None]
  - INFLUENZA [None]
  - SUICIDAL IDEATION [None]
  - SEDATION [None]
